FAERS Safety Report 26027513 (Version 2)
Quarter: 2025Q4

REPORT INFORMATION
  Report Type: Spontaneous
  Country: EU (occurrence: EU)
  Receive Date: 20251111
  Receipt Date: 20251203
  Transmission Date: 20260118
  Serious: Yes (Other)
  Sender: NOVARTIS
  Company Number: EU-002147023-NVSC2025DE172594

PATIENT
  Age: 60 Year
  Sex: Female
  Weight: 71 kg

DRUGS (1)
  1. KESIMPTA [Suspect]
     Active Substance: OFATUMUMAB
     Indication: Multiple sclerosis
     Dosage: 20 MG, QMO
     Route: 065
     Dates: end: 2025

REACTIONS (3)
  - Sicca syndrome [Unknown]
  - Dry mouth [Unknown]
  - Mucosal dryness [Unknown]

NARRATIVE: CASE EVENT DATE: 20250401
